FAERS Safety Report 9260057 (Version 5)
Quarter: 2014Q1

REPORT INFORMATION
  Report Type: Spontaneous
  Country: US (occurrence: US)
  Receive Date: 20130429
  Receipt Date: 20140207
  Transmission Date: 20141002
  Serious: Yes (Disabling)
  Sender: FDA-Public Use
  Company Number: US-ASTRAZENECA-2013SE27681

PATIENT
  Age: 54 Year
  Sex: Female

DRUGS (33)
  1. NEXIUM [Suspect]
     Route: 048
  2. NEXIUM [Suspect]
     Route: 048
     Dates: start: 20080711
  3. NEXIUM [Suspect]
     Route: 048
     Dates: start: 20080804
  4. NEXIUM [Suspect]
     Route: 048
     Dates: start: 20100617
  5. PRILOSEC [Suspect]
     Route: 048
  6. PRILOSEC [Suspect]
     Route: 048
     Dates: start: 20010402
  7. TAGAMET [Concomitant]
  8. PREVACID [Concomitant]
     Dates: start: 20071106
  9. PREVACID [Concomitant]
     Dates: start: 200712, end: 2009
  10. PEPCID [Concomitant]
  11. TUMS [Concomitant]
  12. GAVISCON [Concomitant]
  13. PEPTO BISMOL [Concomitant]
  14. PERCOCET [Concomitant]
  15. PROZAC [Concomitant]
  16. BACLOFEN [Concomitant]
  17. ESTRADIOL [Concomitant]
  18. MONTELUKAST [Concomitant]
  19. LIPITOR [Concomitant]
  20. LIPITOR [Concomitant]
     Dates: start: 20071106
  21. TRAZODONE [Concomitant]
  22. TRAZODONE [Concomitant]
     Dates: start: 20130221
  23. SPIRONOLACTONE [Concomitant]
  24. FEXOFENADINE [Concomitant]
     Dates: start: 20120707
  25. LYRICA [Concomitant]
     Dates: start: 200801
  26. CYMBALTA [Concomitant]
     Dates: start: 20080219
  27. TIZANIDINE [Concomitant]
     Dates: start: 20080711
  28. AMITRIPTYLINE [Concomitant]
     Dates: start: 20081204
  29. PREMPRO [Concomitant]
     Dates: start: 20090902
  30. ALPRAZOLAM [Concomitant]
     Dates: start: 20101015
  31. ZANTAC [Concomitant]
     Dates: start: 20110325
  32. POTASSIUM [Concomitant]
     Dates: start: 20130920
  33. DELTASONE [Concomitant]
     Route: 048
     Dates: start: 20001212

REACTIONS (14)
  - Back disorder [Unknown]
  - Arthritis [Unknown]
  - Musculoskeletal discomfort [Unknown]
  - Multiple fractures [Unknown]
  - Vitamin D deficiency [Unknown]
  - Lumbar radiculopathy [Unknown]
  - Intervertebral disc degeneration [Unknown]
  - Bone disorder [Unknown]
  - Foot fracture [Unknown]
  - Fibula fracture [Unknown]
  - Fall [Unknown]
  - Osteoporosis [Unknown]
  - Arthropathy [Unknown]
  - Depression [Unknown]
